FAERS Safety Report 18487662 (Version 2)
Quarter: 2020Q4

REPORT INFORMATION
  Report Type: Report from Study
  Country: US (occurrence: US)
  Receive Date: 20201111
  Receipt Date: 20201120
  Transmission Date: 20210114
  Serious: No
  Sender: FDA-Public Use
  Company Number: US-TAIHO ONCOLOGY  INC-EU-2020-03977

PATIENT
  Age: 42 Year
  Sex: Male

DRUGS (3)
  1. LONSURF [Suspect]
     Active Substance: TIPIRACIL HYDROCHLORIDE\TRIFLURIDINE
     Indication: COLON CANCER
     Dosage: CURRENT CYCLE UNKNOWN
     Route: 048
     Dates: start: 20201010
  2. FENTANYL. [Concomitant]
     Active Substance: FENTANYL
  3. OXYCODONE [Concomitant]
     Active Substance: OXYCODONE

REACTIONS (2)
  - Thrombophlebitis superficial [Not Recovered/Not Resolved]
  - Dental care [Not Recovered/Not Resolved]
